FAERS Safety Report 8106259-1 (Version None)
Quarter: 2012Q1

REPORT INFORMATION
  Report Type: 
  Country: None (occurrence: None)
  Receive Date: 20120202
  Receipt Date: 20120118
  Transmission Date: 20120608
  Serious: Yes (Hospitalization)
  Sender: FDA-Public Use
  Company Number: CA-JNJFOC-20120113387

PATIENT
  Sex: Male
  Weight: 83.5 kg

DRUGS (14)
  1. AMIODARONE HCL [Concomitant]
     Route: 065
  2. FERROUS GLUCONATE [Concomitant]
     Route: 065
  3. REMICADE [Suspect]
     Indication: COLITIS ULCERATIVE
     Route: 042
  4. IMODIUM [Concomitant]
     Route: 065
  5. ENTOCORT EC [Concomitant]
     Route: 065
  6. WARFARIN SODIUM [Concomitant]
     Route: 065
  7. MESALAMINE [Concomitant]
     Route: 065
  8. PANTOPRAZOLE [Concomitant]
     Route: 065
  9. ROSUVASTATIN [Concomitant]
     Route: 065
  10. ACTONEL [Concomitant]
     Route: 065
  11. ADALAT [Concomitant]
     Route: 065
  12. ACETYLSALICYLIC ACID SRT [Concomitant]
     Route: 065
  13. CANDESARTAN CILEXETIL [Concomitant]
     Route: 065
  14. METOPROLOL TARTRATE [Concomitant]
     Route: 065

REACTIONS (1)
  - APPENDICECTOMY [None]
